FAERS Safety Report 9270913 (Version 2)
Quarter: 2013Q2

REPORT INFORMATION
  Report Type: Spontaneous
  Country: DE (occurrence: DE)
  Receive Date: 20130506
  Receipt Date: 20130627
  Transmission Date: 20140414
  Serious: Yes (Hospitalization, Other)
  Sender: FDA-Public Use
  Company Number: DE-009507513-1304DEU017304

PATIENT
  Age: 71 Year
  Sex: Male

DRUGS (1)
  1. MIRTAZAPINE [Suspect]
     Dosage: UNK
     Route: 048
     Dates: start: 2012, end: 2013

REACTIONS (1)
  - Inappropriate antidiuretic hormone secretion [Recovered/Resolved]
